FAERS Safety Report 21509333 (Version 1)
Quarter: 2022Q4

REPORT INFORMATION
  Report Type: Other
  Country: CA (occurrence: None)
  Receive Date: 20221026
  Receipt Date: 20221026
  Transmission Date: 20230113
  Serious: No
  Sender: FDA-Public Use
  Company Number: CA-ROCHE-3206175

PATIENT
  Age: 47 Year
  Sex: Female

DRUGS (9)
  1. OCREVUS [Suspect]
     Active Substance: OCRELIZUMAB
     Indication: Relapsing-remitting multiple sclerosis
     Dosage: 300 MG AT DAY 0 AND 14, THEN 600 MG EVERY 6 MONTH
     Route: 042
     Dates: start: 20201221
  2. TELMISARTAN [Concomitant]
     Active Substance: TELMISARTAN
     Dosage: HIGH BLOOD PRESSURE PILL
  3. AMITRIPTYLINE [Concomitant]
     Active Substance: AMITRIPTYLINE
  4. ZOLOFT [Concomitant]
     Active Substance: SERTRALINE HYDROCHLORIDE
  5. PANTOPRAZOLE SODIUM [Concomitant]
     Active Substance: PANTOPRAZOLE SODIUM
  6. MYRBETRIQ [Concomitant]
     Active Substance: MIRABEGRON
     Dosage: STARTED A YEAR AND A FEW MONTHS AGO
  7. ZOPICLONE [Concomitant]
     Active Substance: ZOPICLONE
     Dosage: AS NEEDED ONCE OR TWICE A MONTH
  8. DEPO-PROVERA [Concomitant]
     Active Substance: MEDROXYPROGESTERONE ACETATE
  9. COVID-19 VACCINE [Concomitant]

REACTIONS (1)
  - SARS-CoV-2 test positive [Recovered/Resolved]

NARRATIVE: CASE EVENT DATE: 20220301
